FAERS Safety Report 8183779-5 (Version None)
Quarter: 2012Q1

REPORT INFORMATION
  Report Type: 
  Country: None (occurrence: None)
  Receive Date: 20120202
  Receipt Date: 20110220
  Transmission Date: 20120608
  Serious: Yes (Other)
  Sender: FDA-Public Use
  Company Number: TRP_07582_2011

PATIENT
  Sex: Male
  Weight: 108.8633 kg

DRUGS (2)
  1. RIBAVIRIN (RIBAVIRIN) (6 DOSAGE FORMS) [Suspect]
     Indication: HEPATITIS C
     Dosage: 6 DOSAGE FORMS, 1 IN 1 D, ORAL
     Route: 048
     Dates: start: 20100201
  2. PEG-INTRON (0.5 DOSAGE FORMS) [Suspect]
     Indication: HEPATITIS C
     Dosage: 1 IN 1 WK, SUBCUTANEOUS
     Route: 058
     Dates: start: 20100201

REACTIONS (4)
  - PAIN IN EXTREMITY [None]
  - ABDOMINAL PAIN UPPER [None]
  - PAIN [None]
  - WEIGHT DECREASED [None]
